FAERS Safety Report 14926428 (Version 1)
Quarter: 2018Q2

REPORT INFORMATION
  Report Type: Spontaneous
  Country: DE (occurrence: DE)
  Receive Date: 20180523
  Receipt Date: 20180523
  Transmission Date: 20180711
  Serious: No
  Sender: FDA-Public Use
  Company Number: DE-LUPIN (EUROPE) LIMITED-2018-01173

PATIENT
  Age: 32 Year
  Sex: Male

DRUGS (1)
  1. QUETIAPIN-HORMOSAN 25 MG FILMTABLETTEN [Suspect]
     Active Substance: QUETIAPINE
     Indication: PRODUCT USED FOR UNKNOWN INDICATION
     Dosage: 25 MG, UNK
     Route: 048
     Dates: start: 20171222, end: 20171228

REACTIONS (2)
  - Sleep disorder [Recovered/Resolved]
  - Drug ineffective for unapproved indication [Unknown]

NARRATIVE: CASE EVENT DATE: 20171222
